FAERS Safety Report 8528360-0 (Version None)
Quarter: 2012Q3

REPORT INFORMATION
  Report Type: 
  Country: None (occurrence: None)
  Receive Date: 20120722
  Receipt Date: 20120710
  Transmission Date: 20120928
  Serious: Yes (Death)
  Sender: FDA-Public Use
  Company Number: AR-TEVA-348063ISR

PATIENT
  Sex: Female

DRUGS (1)
  1. COPAXONE [Suspect]
     Dosage: 20 MILLIGRAM;
     Route: 058
     Dates: start: 20041130, end: 20120510

REACTIONS (1)
  - CACHEXIA [None]
